FAERS Safety Report 4470795-X (Version None)
Quarter: 2004Q4

REPORT INFORMATION
  Report Type: 
  Country: None (occurrence: None)
  Receive Date: 20041007
  Receipt Date: 20041007
  Transmission Date: 20050328
  Serious: Yes (Congenital Anomaly)
  Sender: FDA-Public Use
  Company Number: None

PATIENT
  Age: 25 Year
  Sex: Male
  Weight: 62.5964 kg

DRUGS (1)
  1. GEODON [Suspect]

REACTIONS (2)
  - ANGINA PECTORIS [None]
  - PAIN IN EXTREMITY [None]
